FAERS Safety Report 18238391 (Version 1)
Quarter: 2020Q3

REPORT INFORMATION
  Report Type: Spontaneous
  Country: IN (occurrence: IN)
  Receive Date: 20200907
  Receipt Date: 20200907
  Transmission Date: 20201103
  Serious: Yes (Death, Hospitalization, Other)
  Sender: FDA-Public Use
  Company Number: IN-GLAXOSMITHKLINE-IN2020GSK177902

PATIENT
  Age: 26 Year
  Sex: Male

DRUGS (1)
  1. ACICLOVIR [Suspect]
     Active Substance: ACYCLOVIR
     Indication: ORAL HERPES
     Dosage: 400 MG, TID
     Route: 048

REACTIONS (24)
  - SJS-TEN overlap [Fatal]
  - Blister [Unknown]
  - Transaminases [Unknown]
  - Leukocytosis [Unknown]
  - Acute respiratory distress syndrome [Unknown]
  - Malaise [Unknown]
  - Lip haemorrhage [Unknown]
  - Acute kidney injury [Unknown]
  - Rash [Unknown]
  - Mucosal erosion [Unknown]
  - Coma scale abnormal [Unknown]
  - Odynophagia [Unknown]
  - Mouth haemorrhage [Unknown]
  - Blood creatinine increased [Unknown]
  - Eye pain [Unknown]
  - Skin exfoliation [Unknown]
  - Nikolsky^s sign [Unknown]
  - Conjunctivitis [Unknown]
  - Condition aggravated [Fatal]
  - Skin lesion [Unknown]
  - Pyrexia [Unknown]
  - Pain of skin [Unknown]
  - Macule [Unknown]
  - Thrombocytopenia [Unknown]
